FAERS Safety Report 10264521 (Version 2)
Quarter: 2014Q2

REPORT INFORMATION
  Report Type: Spontaneous
  Country: US (occurrence: US)
  Receive Date: 20140627
  Receipt Date: 20140627
  Transmission Date: 20141212
  Serious: Yes (Hospitalization)
  Sender: FDA-Public Use
  Company Number: US-BRACCO-010644

PATIENT
  Age: 68 Year
  Sex: Female
  Weight: 117 kg

DRUGS (2)
  1. MULTIHANCE [Suspect]
     Indication: NUCLEAR MAGNETIC RESONANCE IMAGING ABDOMINAL
     Route: 042
     Dates: start: 20140310, end: 20140310
  2. CORTICOSTEROIDS [Concomitant]
     Indication: POLYMYALGIA RHEUMATICA
     Dosage: CHRONIC USE

REACTIONS (4)
  - Dyspnoea [Recovered/Resolved]
  - Rash [Recovered/Resolved]
  - Pruritus generalised [Recovered/Resolved]
  - Dizziness [Recovered/Resolved]
